FAERS Safety Report 8888736 (Version 2)
Quarter: 2013Q1

REPORT INFORMATION
  Report Type: Spontaneous
  Country: FR (occurrence: FR)
  Receive Date: 20121106
  Receipt Date: 20130221
  Transmission Date: 20140127
  Serious: Yes (Death, Hospitalization)
  Sender: FDA-Public Use
  Company Number: FR-BRISTOL-MYERS SQUIBB COMPANY-16978066

PATIENT
  Age: 55 Year
  Sex: Male
  Weight: 90 kg

DRUGS (3)
  1. REYATAZ CAPS [Suspect]
     Indication: HIV INFECTION
     Dosage: TAKEN VIA NASGASTRIC TUBE,DOSE INCREASED TO 400MG
     Dates: start: 20120909
  2. KIVEXA [Suspect]
     Indication: HIV INFECTION
  3. NORVIR [Suspect]
     Indication: HIV INFECTION
     Route: 050

REACTIONS (4)
  - Pneumonia [Fatal]
  - Acute respiratory distress syndrome [Fatal]
  - Renal failure acute [Unknown]
  - Off label use [Unknown]
